FAERS Safety Report 4708300-2 (Version None)
Quarter: 2005Q3

REPORT INFORMATION
  Report Type: 
  Country: None (occurrence: None)
  Receive Date: 20050705
  Receipt Date: 20050705
  Transmission Date: 20060218
  Serious: No
  Sender: FDA-Public Use
  Company Number: None

PATIENT
  Age: 38 Year
  Sex: Male
  Weight: 86.1834 kg

DRUGS (1)
  1. ZETIA [Suspect]
     Indication: DIABETES MELLITUS
     Dosage: 1 PILL EVERY NIGHT BUCCAL
     Route: 002
     Dates: start: 20020101, end: 20030606

REACTIONS (1)
  - DIABETES MELLITUS [None]
